FAERS Safety Report 6195596-6 (Version None)
Quarter: 2009Q2

REPORT INFORMATION
  Report Type: 
  Country: None (occurrence: None)
  Receive Date: 20090519
  Receipt Date: 20090514
  Transmission Date: 20091009
  Serious: Yes (Life-Threatening, Hospitalization)
  Sender: FDA-Public Use
  Company Number: BR-GILEAD-2009-0021974

PATIENT
  Sex: Male
  Weight: 55.8 kg

DRUGS (8)
  1. VIREAD [Suspect]
     Indication: HIV INFECTION
     Route: 048
  2. DARUNAVIR [Suspect]
     Indication: HIV INFECTION
     Dates: start: 20080623, end: 20090402
  3. ETRAVIRINE [Suspect]
     Indication: HIV INFECTION
     Dates: start: 20080623, end: 20090402
  4. RITONAVIR [Suspect]
     Indication: HIV INFECTION
     Dates: start: 20080623, end: 20090402
  5. VITAMIN B COMPLEX CAP [Suspect]
     Indication: NUTRITIONAL SUPPORT
  6. EPIVIR [Concomitant]
     Indication: HIV INFECTION
  7. INSULIN [Concomitant]
     Indication: DIABETES MELLITUS
  8. FOLINIC ACID [Concomitant]
     Indication: NUTRITIONAL SUPPORT

REACTIONS (2)
  - DEHYDRATION [None]
  - RENAL FAILURE ACUTE [None]
